FAERS Safety Report 23242190 (Version 1)
Quarter: 2023Q4

REPORT INFORMATION
  Report Type: Spontaneous
  Country: BE (occurrence: BE)
  Receive Date: 20231129
  Receipt Date: 20231129
  Transmission Date: 20240110
  Serious: Yes (Other)
  Sender: FDA-Public Use
  Company Number: BE-MYLANLABS-2023M1126234

PATIENT
  Age: 56 Year
  Sex: Female

DRUGS (3)
  1. PREGABALIN [Suspect]
     Active Substance: PREGABALIN
     Indication: Restless legs syndrome
     Dosage: UNK
     Route: 065
  2. PRAMIPEXOLE [Suspect]
     Active Substance: PRAMIPEXOLE
     Indication: Restless legs syndrome
     Dosage: UNK, RECEIVED UNDER A TRIAL
     Route: 065
  3. PRAMIPEXOLE [Suspect]
     Active Substance: PRAMIPEXOLE
     Dosage: UNK, PRAMIPEXOLE THERAPY WAS WEANED GRADUALLY AND DISCONTINUED
     Route: 065

REACTIONS (3)
  - Drug ineffective for unapproved indication [Unknown]
  - Gambling disorder [Unknown]
  - Off label use [Unknown]
